FAERS Safety Report 5843149-9 (Version None)
Quarter: 2008Q3

REPORT INFORMATION
  Report Type: 
  Country: None (occurrence: None)
  Receive Date: 20080808
  Receipt Date: 20080724
  Transmission Date: 20090109
  Serious: Yes (Congenital Anomaly)
  Sender: FDA-Public Use
  Company Number: 2008S1014012

PATIENT

DRUGS (1)
  1. METFORMIN HCL [Suspect]
     Indication: INFERTILITY
     Dosage: TRANSPLACENTAL
     Route: 064

REACTIONS (2)
  - HOLOPROSENCEPHALY [None]
  - MATERNAL DRUGS AFFECTING FOETUS [None]
